FAERS Safety Report 10646650 (Version 3)
Quarter: 2015Q1

REPORT INFORMATION
  Report Type: Spontaneous
  Country: BR (occurrence: BR)
  Receive Date: 20141211
  Receipt Date: 20150316
  Transmission Date: 20150720
  Serious: Yes (Other)
  Sender: FDA-Public Use
  Company Number: BR-PFIZER INC-2014195432

PATIENT
  Age: 58 Year
  Sex: Female
  Weight: 74 kg

DRUGS (4)
  1. CONCOR [Concomitant]
     Active Substance: BISOPROLOL FUMARATE
     Dosage: 1X/DAY
  2. SUTENT [Suspect]
     Active Substance: SUNITINIB MALATE
     Dosage: 25 MG, CONTINUOUS USE
     Route: 048
     Dates: start: 2014, end: 201502
  3. SUTENT [Suspect]
     Active Substance: SUNITINIB MALATE
     Indication: RENAL CELL CARCINOMA
     Dosage: 50 MG, CYCLE 2 PER 2
     Route: 048
     Dates: start: 20140601
  4. LOSARTAN POTASSIUM. [Concomitant]
     Active Substance: LOSARTAN POTASSIUM
     Indication: BLOOD PRESSURE INCREASED
     Dosage: 50 MG, 2X/DAY

REACTIONS (27)
  - Blood pressure increased [Unknown]
  - Pigmentation disorder [Unknown]
  - Yellow skin [Unknown]
  - Oral pain [Unknown]
  - Skin exfoliation [Unknown]
  - Mouth injury [Unknown]
  - Pharyngeal erythema [Unknown]
  - Capillary fragility [Unknown]
  - Immunodeficiency [Unknown]
  - Diarrhoea [Not Recovered/Not Resolved]
  - Dry skin [Unknown]
  - Muscle contractions involuntary [Not Recovered/Not Resolved]
  - Candida infection [Unknown]
  - Renal disorder [Unknown]
  - Pain in extremity [Not Recovered/Not Resolved]
  - Odynophagia [Unknown]
  - Sinusitis [Unknown]
  - Dysgeusia [Unknown]
  - Hair colour changes [Not Recovered/Not Resolved]
  - Blood uric acid increased [Not Recovered/Not Resolved]
  - Gait disturbance [Not Recovered/Not Resolved]
  - Swollen tongue [Unknown]
  - Erythema [Not Recovered/Not Resolved]
  - Folliculitis [Unknown]
  - Tongue injury [Unknown]
  - Skin fissures [Unknown]
  - Faeces discoloured [Unknown]

NARRATIVE: CASE EVENT DATE: 2014
